FAERS Safety Report 6263715-9 (Version None)
Quarter: 2009Q3

REPORT INFORMATION
  Report Type: 
  Country: None (occurrence: None)
  Receive Date: 20090707
  Receipt Date: 20090707
  Transmission Date: 20100115
  Serious: No
  Sender: FDA-Public Use
  Company Number: None

PATIENT
  Age: 57 Year
  Sex: Male
  Weight: 106.5953 kg

DRUGS (4)
  1. ZICAM COLD REMEDY GEL SWABS ZICAM LLC, PHOENIX, AZ [Suspect]
     Indication: NASOPHARYNGITIS
     Dosage: ONE APPLICATOR 2-4 X PER DAY NASAL
     Route: 045
     Dates: start: 20090410, end: 20090414
  2. ZICAM COLD REMEDY GEL SWABS ZICAM LLC, PHOENIX, AZ [Suspect]
     Indication: VIRAL INFECTION
     Dosage: ONE APPLICATOR 2-4 X PER DAY NASAL
     Route: 045
     Dates: start: 20090410, end: 20090414
  3. ANTIBIOTIC [Concomitant]
  4. INOCULATION RECEIVED FOR SHINGLES [Concomitant]

REACTIONS (4)
  - ANOSMIA [None]
  - DYSGEUSIA [None]
  - HEARING IMPAIRED [None]
  - TINNITUS [None]
